FAERS Safety Report 4828229-9 (Version None)
Quarter: 2005Q4

REPORT INFORMATION
  Report Type: 
  Country: None (occurrence: None)
  Receive Date: 20051115
  Receipt Date: 20050103
  Transmission Date: 20060501
  Serious: No
  Sender: FDA-Public Use
  Company Number: US-BRISTOL-MYERS SQUIBB COMPANY-12810933

PATIENT
  Age: 51 Year
  Sex: Male
  Weight: 69 kg

DRUGS (3)
  1. SUSTIVA [Suspect]
     Indication: HIV INFECTION
     Route: 048
     Dates: start: 20040701
  2. COMBIVIR [Concomitant]
     Indication: HIV INFECTION
  3. PAXIL [Concomitant]

REACTIONS (1)
  - NEUROPATHY PERIPHERAL [None]
